FAERS Safety Report 18307612 (Version 4)
Quarter: 2022Q2

REPORT INFORMATION
  Report Type: Spontaneous
  Country: US (occurrence: US)
  Receive Date: 20200924
  Receipt Date: 20220509
  Transmission Date: 20220720
  Serious: No
  Sender: FDA-Public Use
  Company Number: US-PFIZER INC-2020365539

PATIENT
  Age: 59 Year
  Sex: Male
  Weight: 113.4 kg

DRUGS (3)
  1. PREGABALIN [Suspect]
     Active Substance: PREGABALIN
     Indication: Peripheral nerve injury
     Dosage: 200 MG, 3X/DAY
     Route: 048
  2. PREGABALIN [Suspect]
     Active Substance: PREGABALIN
     Indication: Crush injury
     Dosage: 200 MG, AS NEEDED (1 CAPSULE 3 TIMES DAILY PRN)
     Route: 048
  3. PREGABALIN [Suspect]
     Active Substance: PREGABALIN
     Indication: Pain
     Dosage: 200 MG, AS NEEDED (3 TIMES DAILY )
     Route: 048

REACTIONS (1)
  - Drug ineffective [Unknown]
